FAERS Safety Report 7287380-7 (Version None)
Quarter: 2011Q1

REPORT INFORMATION
  Report Type: 
  Country: None (occurrence: None)
  Receive Date: 20110211
  Receipt Date: 20110202
  Transmission Date: 20110831
  Serious: No
  Sender: FDA-Public Use
  Company Number: AU-JNJFOC-20110202261

PATIENT
  Sex: Male

DRUGS (4)
  1. DURAGESIC-100 [Suspect]
     Indication: BACK PAIN
     Route: 062
  2. DURAGESIC-100 [Suspect]
     Indication: ARTHRALGIA
     Route: 062
  3. AVAPRO [Concomitant]
     Route: 065
  4. NEXIUM [Concomitant]
     Route: 065

REACTIONS (3)
  - INADEQUATE ANALGESIA [None]
  - NAUSEA [None]
  - INAPPROPRIATE SCHEDULE OF DRUG ADMINISTRATION [None]
